FAERS Safety Report 7203624-1 (Version None)
Quarter: 2010Q4

REPORT INFORMATION
  Report Type: 
  Country: None (occurrence: None)
  Receive Date: 20101230
  Receipt Date: 20101222
  Transmission Date: 20110411
  Serious: Yes (Other)
  Sender: FDA-Public Use
  Company Number: IT-PFIZER INC-2010179839

PATIENT
  Age: 65 Year
  Sex: Male

DRUGS (4)
  1. TORVAST [Suspect]
     Indication: ARTERIOSCLEROSIS OBLITERANS
     Dosage: UNK
     Route: 048
     Dates: start: 20101116, end: 20101215
  2. AMLODIPINE [Concomitant]
     Dosage: UNK
  3. TRIATEC COMP [Concomitant]
     Dosage: UNK
  4. CONCOR [Concomitant]
     Dosage: UNK

REACTIONS (2)
  - CARDIAC DISORDER [None]
  - HYPERHIDROSIS [None]
